FAERS Safety Report 7554888-6 (Version None)
Quarter: 2011Q2

REPORT INFORMATION
  Report Type: 
  Country: None (occurrence: None)
  Receive Date: 20110615
  Receipt Date: 20110615
  Transmission Date: 20111010
  Serious: Yes (Death)
  Sender: FDA-Public Use
  Company Number: None

PATIENT
  Age: 78 Year
  Sex: Male

DRUGS (6)
  1. ALBUTEROL SULFATE AUTOHALER [Concomitant]
  2. FUROSEMIDE [Concomitant]
  3. METAMUCIL-2 [Concomitant]
  4. REVLIMID [Suspect]
     Indication: MULTIPLE MYELOMA
     Dosage: REVLIMID 10MG DAILY X21D/28D ORALLY
     Route: 048
     Dates: start: 20081001, end: 20100801
  5. POTASSIUM CHLORIDE [Concomitant]
  6. DOCUSATE [Concomitant]

REACTIONS (8)
  - URINARY INCONTINENCE [None]
  - PNEUMONIA ASPIRATION [None]
  - CONFUSIONAL STATE [None]
  - RENAL FAILURE ACUTE [None]
  - ASTHENIA [None]
  - FATIGUE [None]
  - CARDIAC DISORDER [None]
  - HYPERCALCAEMIA [None]
